FAERS Safety Report 8893351 (Version 4)
Quarter: 2013Q2

REPORT INFORMATION
  Report Type: Spontaneous
  Country: BR (occurrence: BR)
  Receive Date: 20121108
  Receipt Date: 20130405
  Transmission Date: 20140414
  Serious: Yes (Life-Threatening, Other)
  Sender: FDA-Public Use
  Company Number: PHHY2011BR21075

PATIENT
  Age: 36 Year
  Sex: Male
  Weight: 92 kg

DRUGS (8)
  1. LEPONEX [Suspect]
     Indication: SCHIZOPHRENIA
     Dosage: 4 DF
     Route: 048
  2. LEPONEX [Suspect]
     Dosage: 0.5 DF,(FOR THREE MONTHS)
     Route: 048
  3. LEPONEX [Suspect]
     Dosage: 0.25 DF, UNK
     Route: 048
     Dates: start: 2001
  4. LEPONEX [Suspect]
     Dosage: 1 DF, UNK
     Route: 048
  5. LEPONEX [Suspect]
     Dosage: 2 DF, UNK
     Route: 048
  6. LEPONEX [Suspect]
     Dosage: 3 DF, (25 MG)
     Route: 048
     Dates: end: 201211
  7. LEPONEX [Suspect]
     Dosage: 3.5 DF,(FOR ONE MONTH, HE RESUMED THE USE OF THREE TABLETS OF LEPONEX 100MG AND 2 TAB OF LEPONEX100
     Route: 048
  8. ATENOLOL W/CHLORTALIDONE [Concomitant]
     Indication: HYPERTENSION
     Dosage: 1 DF, QD
     Route: 048

REACTIONS (21)
  - Suicide attempt [Recovered/Resolved]
  - Suicidal ideation [Recovered/Resolved]
  - Glucose tolerance impaired [Not Recovered/Not Resolved]
  - Furuncle [Not Recovered/Not Resolved]
  - Pyrexia [Not Recovered/Not Resolved]
  - Delusion [Recovered/Resolved]
  - Persecutory delusion [Not Recovered/Not Resolved]
  - Abdominal pain [Recovered/Resolved]
  - Full blood count abnormal [Recovered/Resolved]
  - Gait disturbance [Unknown]
  - Vertigo [Not Recovered/Not Resolved]
  - Incorrect dose administered [Unknown]
  - Decreased appetite [Not Recovered/Not Resolved]
  - Syncope [Not Recovered/Not Resolved]
  - Dizziness [Not Recovered/Not Resolved]
  - Drug ineffective [Unknown]
  - Neutrophil count increased [Not Recovered/Not Resolved]
  - Leukocytosis [Unknown]
  - Sedation [Unknown]
  - Blood pressure increased [Recovered/Resolved]
  - Blood glucose increased [Unknown]
